FAERS Safety Report 14933811 (Version 1)
Quarter: 2018Q2

REPORT INFORMATION
  Report Type: Spontaneous
  Country: US (occurrence: US)
  Receive Date: 20180524
  Receipt Date: 20180524
  Transmission Date: 20180711
  Serious: No
  Sender: FDA-Public Use
  Company Number: US-TARO-2018TAR00016

PATIENT
  Age: 9 Month
  Weight: 8.62 kg

DRUGS (1)
  1. FEVERALL JR. STRENGTH [Suspect]
     Active Substance: ACETAMINOPHEN
     Dosage: 325 MG, ONCE
     Route: 054
     Dates: start: 20180105, end: 20180105

REACTIONS (4)
  - Drug dispensing error [Recovered/Resolved]
  - Vomiting [Recovered/Resolved]
  - Accidental overdose [Recovered/Resolved]
  - Drug administered to patient of inappropriate age [Recovered/Resolved]

NARRATIVE: CASE EVENT DATE: 20180105
